FAERS Safety Report 11122903 (Version 14)
Quarter: 2021Q1

REPORT INFORMATION
  Report Type: Spontaneous
  Country: US (occurrence: US)
  Receive Date: 20150519
  Receipt Date: 20210105
  Transmission Date: 20210419
  Serious: Yes (Hospitalization, Other)
  Sender: FDA-Public Use
  Company Number: US-PFIZER INC-2015165338

PATIENT
  Age: 67 Year
  Sex: Female
  Weight: 120 kg

DRUGS (74)
  1. HYDRODIURIL [Concomitant]
     Active Substance: HYDROCHLOROTHIAZIDE
     Dosage: 25 MG, UNK
  2. KENALOG [Concomitant]
     Active Substance: TRIAMCINOLONE ACETONIDE
     Dosage: UNK, AS NEEDED
     Route: 061
  3. LEVOTHROID [Concomitant]
     Active Substance: LEVOTHYROXINE SODIUM
     Dosage: 25 UG, DAILY
     Route: 048
  4. LEVOTHROID [Concomitant]
     Active Substance: LEVOTHYROXINE SODIUM
     Dosage: 37.5 UG, DAILY
     Route: 048
  5. ABC PLUS SENIOR [Concomitant]
     Dosage: 1 DF, DAILY
     Route: 048
  6. ALLOPURINOL. [Concomitant]
     Active Substance: ALLOPURINOL
     Indication: GOUT
     Dosage: 100 MG, 1X/DAY
     Route: 048
  7. APRESOLINE HYDROCHLORIDE [Concomitant]
     Active Substance: HYDRALAZINE HYDROCHLORIDE
     Dosage: 25 MG, 3X/DAY
     Route: 048
  8. FLONASE [Concomitant]
     Active Substance: FLUTICASONE PROPIONATE
     Dosage: 1 DF, 2X/DAY (50 MCG/ ACT )
     Route: 045
  9. VIBRAMYCIN [Concomitant]
     Active Substance: DOXYCYCLINE
     Dosage: 100 MG, 2X/DAY
     Route: 048
  10. APRISO [Concomitant]
     Active Substance: MESALAMINE
     Indication: CROHN^S DISEASE
     Dosage: 0.75 G, 4X/DAY (2 CAPSULES)
     Route: 048
  11. PROVENTIL HFA [Concomitant]
     Active Substance: ALBUTEROL SULFATE
     Indication: WHEEZING
     Dosage: 2 DF, AS NEEDED (INHALE 2 PUFFS INTO THE LUNGS EVERY 6 HOURS AS NEEDED)
     Route: 045
  12. METRONIDAZOLE. [Concomitant]
     Active Substance: METRONIDAZOLE
     Dosage: UNK
     Route: 061
  13. NOVOLOG [Concomitant]
     Active Substance: INSULIN ASPART
     Indication: DIABETES MELLITUS
     Dosage: 20 IU, 3X/DAY
     Route: 058
     Dates: start: 1993
  14. NOVOLOG [Concomitant]
     Active Substance: INSULIN ASPART
     Dosage: 50 IU, 3X/DAY
     Route: 058
     Dates: start: 1993
  15. LOSARTAN/HCT [Concomitant]
     Active Substance: HYDROCHLOROTHIAZIDE\LOSARTAN POTASSIUM
     Indication: HYPERTENSION
     Dosage: 1 DF, DAILY (LOSARTAN?100MG ?HYDROCHLOROTHIAZIDE?25 MG)
     Route: 048
  16. HYDROCORTISONE. [Concomitant]
     Active Substance: HYDROCORTISONE
     Indication: ROSACEA
     Dosage: APPLY TO FACE AND EARS AS NEEDED TAPER OFF AS DIRECTED
     Route: 061
  17. LEVOTHYROXIN [Concomitant]
     Active Substance: LEVOTHYROXINE
     Indication: THYROID DISORDER
     Dosage: 37.5 MG, DAILY
  18. ROCALTROL [Concomitant]
     Active Substance: CALCITRIOL
     Dosage: 0.25 UG, 1X/DAY
     Route: 048
  19. LYRICA [Suspect]
     Active Substance: PREGABALIN
     Indication: OSTEOARTHRITIS
     Dosage: 100 MG, 3X/DAY
     Route: 048
  20. LYRICA [Suspect]
     Active Substance: PREGABALIN
     Dosage: UNK
     Route: 048
  21. TUDORZA PRESSAIR [Concomitant]
     Active Substance: ACLIDINIUM BROMIDE
     Dosage: 400 M MCG/ACT AEPB (INHALE INTO THE LUNGS)
     Route: 045
  22. ISORDIL [Concomitant]
     Active Substance: ISOSORBIDE DINITRATE
     Dosage: 10 MG, 3X/DAY
     Route: 048
  23. HYDRODIURIL [Concomitant]
     Active Substance: HYDROCHLOROTHIAZIDE
     Indication: HYPERTENSION
     Dosage: 12.5 MG, DAILY
     Route: 048
     Dates: start: 201505
  24. KETOPROFEN. [Concomitant]
     Active Substance: KETOPROFEN
     Dosage: UNK (POWDER)
  25. HYZAAR [Concomitant]
     Active Substance: HYDROCHLOROTHIAZIDE\LOSARTAN POTASSIUM
     Dosage: 1 DF (50?12.5 MG), 1X/DAY
     Route: 048
  26. PHENERGAN [Concomitant]
     Active Substance: PROMETHAZINE HYDROCHLORIDE
     Dosage: UNK (6.25 MG/5 ML)
  27. VOLTAREN [Concomitant]
     Active Substance: DICLOFENAC SODIUM
     Dosage: 2 G, 2X/DAY
     Route: 061
  28. NIZORAL [Concomitant]
     Active Substance: KETOCONAZOLE
     Indication: ROSACEA
     Dosage: UNK
     Route: 061
  29. FERROUS SULFATE. [Concomitant]
     Active Substance: FERROUS SULFATE
     Dosage: UNK, WEEKLY
     Route: 048
  30. SYNTHROID [Concomitant]
     Active Substance: LEVOTHYROXINE SODIUM
     Dosage: 75 UG, UNK
  31. HUMALOG [Concomitant]
     Active Substance: INSULIN LISPRO
     Dosage: UNK, 3X/DAY (INJECT 0?18 UNITS INTO THE SKIN 3 TIMES DAILY (WITH MEALS))
  32. LYRICA [Suspect]
     Active Substance: PREGABALIN
     Indication: DIABETIC NEUROPATHY
     Dosage: 25 MG, 3X/DAY
     Route: 048
     Dates: start: 2014
  33. FLECTOR [Concomitant]
     Active Substance: DICLOFENAC EPOLAMINE
     Indication: PAIN IN EXTREMITY
     Dosage: 1 PLACE ON TO SKIN 2X/DAY
     Route: 062
  34. FLECTOR [Concomitant]
     Active Substance: DICLOFENAC EPOLAMINE
     Dosage: 1 DF, 2X/DAY
     Route: 062
  35. LIDEX [Concomitant]
     Active Substance: FLUOCINONIDE
     Dosage: 0.05 % EXTERNAL SOLUTION, 2X/DAY
     Route: 061
  36. APRISO [Concomitant]
     Active Substance: MESALAMINE
     Dosage: 0.75 G, 2X/DAY (TWO CAPSULES IN THE MORNING AND TWO CAPSULES IN THE EVENING)
     Route: 048
     Dates: start: 2011
  37. ASPIRIN [ACETYLSALICYLIC ACID] [Concomitant]
     Active Substance: ASPIRIN
     Dosage: 81 MG, ALTERNATE DAY (TAKE 81 MG BY MOUTH EVERY OTHER DAY)
     Route: 048
  38. LEVEMIR [Concomitant]
     Active Substance: INSULIN DETEMIR
     Dosage: 100 IU, 1X/DAY (INJECT INTO THE SKIN NIGHTLY)
     Route: 058
  39. DEXILANT [Concomitant]
     Active Substance: DEXLANSOPRAZOLE
     Indication: GASTROOESOPHAGEAL REFLUX DISEASE
     Dosage: 60 MG, DAILY
     Route: 048
  40. VICTOZA [Concomitant]
     Active Substance: LIRAGLUTIDE
     Indication: DIABETES MELLITUS
     Dosage: 1.8 IU, 1X/DAY
     Route: 058
     Dates: start: 2010
  41. LANTUS [Concomitant]
     Active Substance: INSULIN GLARGINE
     Indication: DIABETES MELLITUS
     Dosage: 80 IU, 2X/DAY
     Route: 058
     Dates: start: 1993
  42. COZAAR [Concomitant]
     Active Substance: LOSARTAN POTASSIUM
     Dosage: 25 MG, DAILY
     Route: 048
  43. DEPAKOTE [Concomitant]
     Active Substance: DIVALPROEX SODIUM
     Dosage: 125 MG, UNK
  44. ZOFRAN [Concomitant]
     Active Substance: ONDANSETRON HYDROCHLORIDE
     Indication: NAUSEA
     Dosage: UNK, AS NEEDED
     Route: 042
  45. LYRICA [Suspect]
     Active Substance: PREGABALIN
     Indication: ARTHRALGIA
     Dosage: 75 MG, 2X/DAY
     Route: 048
     Dates: start: 20190103, end: 20190202
  46. LYRICA [Suspect]
     Active Substance: PREGABALIN
     Indication: OBESITY
     Dosage: 25 MG, 3X/DAY(TAKE 1 CAPSULE BY MOUTH 3 TIMES DAILY FOR 30 DAYS.
     Route: 048
  47. PHAZYME [SIMETICONE] [Concomitant]
     Dosage: 180 MG, 1X/DAY (NIGHTY)
     Route: 048
  48. PROVENTIL HFA [Concomitant]
     Active Substance: ALBUTEROL SULFATE
     Dosage: 2.5 MG/ML, UNK (2.5 MG/ML, (TAKE 3 MLS BY NEBULIZATION EVERY 6 HOURS))
  49. ASPIRIN [ACETYLSALICYLIC ACID] [Concomitant]
     Active Substance: ASPIRIN
     Dosage: 81 MG, DAILY (AS NEEDED)
     Route: 048
  50. DEMADEX [Concomitant]
     Active Substance: TORSEMIDE
     Dosage: 20 MG, UNK
  51. CELEXA [Concomitant]
     Active Substance: CITALOPRAM HYDROBROMIDE
     Dosage: 10 MG, DAILY
     Route: 048
  52. FLECTOR [Concomitant]
     Active Substance: DICLOFENAC EPOLAMINE
     Indication: ARTHRALGIA
     Dosage: 1 DF, AS NEEDED (ONE PATCH APPLIED TO A PAINFUL AREA AS NEEDED)
     Route: 062
  53. ZYLOPRIM [Concomitant]
     Active Substance: ALLOPURINOL
     Dosage: 100 MG, DAILY
     Route: 048
  54. VENTOLIN HFA [Concomitant]
     Active Substance: ALBUTEROL SULFATE
     Indication: WHEEZING
     Dosage: 2 DF, AS NEEDED (INHALE 2 PUFFS INTO THE LUNGS EVERY 6 HOURS AS NEEDED)
     Route: 045
  55. TYLENOL [Concomitant]
     Active Substance: ACETAMINOPHEN
     Dosage: 650 MG, (EVERY 8 HOURS AS NEEDED)
     Route: 048
  56. LEVEMIR [Concomitant]
     Active Substance: INSULIN DETEMIR
     Dosage: 90 IU, 2X/DAY
     Route: 058
  57. NORVASC [Concomitant]
     Active Substance: AMLODIPINE BESYLATE
     Indication: BLOOD PRESSURE SYSTOLIC INCREASED
     Dosage: 5 MG, AS NEEDED (DAILY)
     Route: 048
  58. FERROUS SULFATE. [Concomitant]
     Active Substance: FERROUS SULFATE
     Indication: MINERAL SUPPLEMENTATION
     Dosage: 325 MG, 1X/DAY
     Route: 048
     Dates: start: 201601
  59. COREG [Concomitant]
     Active Substance: CARVEDILOL
     Indication: CARDIAC DISORDER
     Dosage: 3.125 MG, 2X/DAY (WITH MEALS)
     Route: 048
     Dates: start: 20151210
  60. DUONEB [Concomitant]
     Active Substance: ALBUTEROL SULFATE\IPRATROPIUM BROMIDE
     Dosage: 1 DF, EVERY 4 HRS
     Route: 045
  61. FUROSEMIDE. [Concomitant]
     Active Substance: FUROSEMIDE
     Indication: DIURETIC THERAPY
     Dosage: 40 MG, 1X/DAY
     Route: 048
  62. HYDROCORTISONE. [Concomitant]
     Active Substance: HYDROCORTISONE
     Dosage: UNK
  63. DOXY?CYCL HYOL [Concomitant]
     Indication: ROSACEA
     Dosage: 100 MG, 1X/DAY
     Route: 048
  64. LYRICA [Suspect]
     Active Substance: PREGABALIN
     Indication: NEUROPATHY PERIPHERAL
     Dosage: 25 MG, 3X/DAY
     Route: 048
     Dates: start: 2005, end: 2008
  65. LYRICA [Suspect]
     Active Substance: PREGABALIN
     Indication: POLYNEUROPATHY
     Dosage: 50 MG, 2X/DAY
     Route: 048
  66. COREG [Concomitant]
     Active Substance: CARVEDILOL
     Dosage: 12.5 MG, DAILY (WITH MEAL)
     Route: 048
  67. LASIX [Concomitant]
     Active Substance: FUROSEMIDE
     Dosage: 40 MG, 2X/DAY
     Route: 048
  68. VENTOLIN HFA [Concomitant]
     Active Substance: ALBUTEROL SULFATE
     Indication: DYSPNOEA
     Dosage: UNK, AS NEEDED (108 (90 BASE) MCG/ACT INHALER (INHALE 2 PUFFS INTO THE LUNGS EVERY 4 HOURS AS NEEDE)
  69. NIZORAL [Concomitant]
     Active Substance: KETOCONAZOLE
     Indication: ROSACEA
     Dosage: CREAM APPLY TO FACE AND EARS AS NEEDED TAPER OFF AS DIRECTED
     Route: 061
  70. LAC?HYDRIN [Concomitant]
     Active Substance: AMMONIUM LACTATE
     Dosage: UNK (LOTION)
     Route: 061
  71. BACTROBAN [Concomitant]
     Active Substance: MUPIROCIN\MUPIROCIN CALCIUM
     Indication: DIABETIC ULCER
     Dosage: UNK, AS NEEDED (3 TIMES DAILY AS NEEDED)
     Route: 061
  72. FERROUS SULFATE. [Concomitant]
     Active Substance: FERROUS SULFATE
     Dosage: 325 MG, 3X/DAY (WITH MEALS)
     Route: 048
  73. BREO ELLIPTA [Concomitant]
     Active Substance: FLUTICASONE FUROATE\VILANTEROL TRIFENATATE
     Dosage: UNK, DAILY ( FLUTICASONE FUROATE: 200UG/ VILANTEROL: 25UG)
     Route: 045
  74. HUMALOG [Concomitant]
     Active Substance: INSULIN LISPRO
     Dosage: 100 ML, 1X/DAY (INJECT 0?9 UNITS INTO THE SKIN NIGHTLY)

REACTIONS (23)
  - Drug ineffective [Unknown]
  - Anxiety [Not Recovered/Not Resolved]
  - Cataract [Unknown]
  - Insomnia [Unknown]
  - Hypoaesthesia [Unknown]
  - Arteriosclerosis [Not Recovered/Not Resolved]
  - Renal failure [Recovered/Resolved]
  - Gait disturbance [Unknown]
  - Fluid retention [Recovered/Resolved]
  - Intentional product use issue [Unknown]
  - Mobility decreased [Unknown]
  - Condition aggravated [Unknown]
  - Urinary tract infection [Unknown]
  - Blood glucose increased [Unknown]
  - Peripheral swelling [Not Recovered/Not Resolved]
  - Back pain [Not Recovered/Not Resolved]
  - Glycosylated haemoglobin increased [Unknown]
  - Mental disorder [Unknown]
  - Cardiovascular disorder [Recovered/Resolved]
  - Weight increased [Unknown]
  - Muscle tightness [Unknown]
  - Tremor [Unknown]
  - Pain [Unknown]

NARRATIVE: CASE EVENT DATE: 201405
